FAERS Safety Report 13495736 (Version 1)
Quarter: 2017Q2

REPORT INFORMATION
  Report Type: Report from Study
  Country: None (occurrence: US)
  Receive Date: 20170428
  Receipt Date: 20170428
  Transmission Date: 20170830
  Serious: Yes (Hospitalization)
  Sender: FDA-Public Use
  Company Number: US-ABBVIE-17K-163-1951240-00

PATIENT
  Age: 73 Year
  Sex: Male
  Weight: 65.38 kg

DRUGS (4)
  1. HUMIRA [Suspect]
     Active Substance: ADALIMUMAB
     Indication: RHEUMATOID ARTHRITIS
     Route: 058
     Dates: end: 20170315
  2. LEFLUNOMIDE. [Concomitant]
     Active Substance: LEFLUNOMIDE
     Indication: RHEUMATOID ARTHRITIS
  3. PREDNISONE. [Concomitant]
     Active Substance: PREDNISONE
     Indication: RHEUMATOID ARTHRITIS
  4. TRAMADOL. [Concomitant]
     Active Substance: TRAMADOL
     Indication: PAIN

REACTIONS (7)
  - Dyspnoea [Recovered/Resolved]
  - Left ventricular failure [Not Recovered/Not Resolved]
  - Pleural effusion [Unknown]
  - Pericardial effusion [Unknown]
  - Dyspnoea [Unknown]
  - Dehydration [Recovered/Resolved]
  - Fluid overload [Recovering/Resolving]

NARRATIVE: CASE EVENT DATE: 20170119
